FAERS Safety Report 11571449 (Version 2)
Quarter: 2015Q4

REPORT INFORMATION
  Report Type: Spontaneous
  Country: US (occurrence: US)
  Receive Date: 20150916
  Receipt Date: 20151104
  Transmission Date: 20160304
  Serious: No
  Sender: FDA-Public Use
  Company Number: US-ELI_LILLY_AND_COMPANY-US200909005078

PATIENT
  Age: 69 Year
  Sex: Female

DRUGS (6)
  1. FORTEO [Suspect]
     Active Substance: TERIPARATIDE
     Indication: OSTEOPOROSIS
     Dosage: UNK, UNKNOWN
     Dates: start: 200901
  2. OXYGEN. [Concomitant]
     Active Substance: OXYGEN
  3. FORTEO [Suspect]
     Active Substance: TERIPARATIDE
     Dosage: 20 UG, DAILY (1/D)
  4. NIACIN. [Concomitant]
     Active Substance: NIACIN
  5. FISH OIL [Concomitant]
     Active Substance: FISH OIL
  6. FOLIC ACID. [Concomitant]
     Active Substance: FOLIC ACID

REACTIONS (7)
  - Malaise [Recovering/Resolving]
  - Joint injury [Recovered/Resolved]
  - Fall [Unknown]
  - Back injury [Recovered/Resolved]
  - Hair colour changes [Not Recovered/Not Resolved]
  - Olfactory nerve disorder [Unknown]
  - Off label use [Recovered/Resolved]

NARRATIVE: CASE EVENT DATE: 200901
